FAERS Safety Report 5120761-6 (Version None)
Quarter: 2006Q4

REPORT INFORMATION
  Report Type: 
  Country: None (occurrence: None)
  Receive Date: 20061003
  Receipt Date: 20061003
  Transmission Date: 20070319
  Serious: Yes (Hospitalization)
  Sender: FDA-Public Use
  Company Number: None

PATIENT
  Sex: Male
  Weight: 84.8226 kg

DRUGS (28)
  1. TAXOTERE [Suspect]
     Indication: PROSTATE CANCER
     Dosage: 60 MG DAYS 1,8,15 Q 28 IV DRIP
     Route: 041
     Dates: start: 20060727, end: 20060921
  2. DOXIL [Suspect]
     Indication: PROSTATE CANCER
     Dosage: 60 MG DAY 1 Q 28 IV DRIP
     Route: 041
     Dates: start: 20060727, end: 20060921
  3. MAX-OXIDE [Concomitant]
  4. LOPERAMIDE [Concomitant]
  5. TRAZODONE HCL [Concomitant]
  6. PAXIL [Concomitant]
  7. GLUCOTROL XL [Concomitant]
  8. TOPROL-XL [Concomitant]
  9. PRILOSEC [Concomitant]
  10. COUMADIN [Concomitant]
  11. CRESTOR [Concomitant]
  12. LEVOXYL [Concomitant]
  13. LASIX [Concomitant]
  14. POTASSIUM KCL [Concomitant]
  15. ASPIRIN [Concomitant]
  16. LISINOPRIL [Concomitant]
  17. MEGESTROL AC [Concomitant]
  18. VITAMIN B COMPLEX CAP [Concomitant]
  19. ASCORBIC ACID [Concomitant]
  20. CITRACAL [Concomitant]
  21. LOVENOX [Concomitant]
  22. CIPRO [Concomitant]
  23. MS CONTIN [Concomitant]
  24. HYDROCODONE BITARTRATE [Concomitant]
  25. PHENERGAN [Concomitant]
  26. UROCET [Concomitant]
  27. DULCOLAX [Concomitant]
  28. DIFLUCAN [Concomitant]

REACTIONS (3)
  - BLOOD PRESSURE DECREASED [None]
  - INTERNATIONAL NORMALISED RATIO INCREASED [None]
  - PAIN [None]
